FAERS Safety Report 9128029 (Version 4)
Quarter: 2016Q2

REPORT INFORMATION
  Report Type: Spontaneous
  Country: US (occurrence: US)
  Receive Date: 20130228
  Receipt Date: 20160405
  Transmission Date: 20160815
  Serious: No
  Sender: FDA-Public Use
  Company Number: US-PFIZER INC-2013068519

PATIENT
  Age: 50 Year
  Sex: Female

DRUGS (4)
  1. CORTEF [Suspect]
     Active Substance: HYDROCORTISONE
     Indication: ADDISON^S DISEASE
     Dosage: 15 MG, DAILY (10 MG EVERY AM, 5 MG EVERY PM)
  2. HYDROCORTISONE. [Suspect]
     Active Substance: HYDROCORTISONE
     Indication: STRESS
     Dosage: 100 MG DAILY, AS NEEDED
  3. CORTEF [Suspect]
     Active Substance: HYDROCORTISONE
     Dosage: 100 MG, DAILY AS NEEDED
  4. HYDROCORTISONE. [Suspect]
     Active Substance: HYDROCORTISONE
     Indication: ADDISON^S DISEASE
     Dosage: 15 MG, DAILY (10 MG EVERY AM AND 5 MG EVERY PM)

REACTIONS (2)
  - Bone loss [Unknown]
  - Weight increased [Unknown]
